FAERS Safety Report 9713643 (Version 1)
Quarter: 2013Q4

REPORT INFORMATION
  Report Type: Spontaneous
  Country: US (occurrence: None)
  Receive Date: 20131122
  Receipt Date: 20131122
  Transmission Date: 20140711
  Serious: No
  Sender: FDA-Public Use
  Company Number: MED-13-106

PATIENT
  Age: 6 Year
  Sex: Female
  Weight: 24.95 kg

DRUGS (3)
  1. SUCRAID [Suspect]
     Indication: SUCRASE-ISOMALTASE DEFICIENCY
     Dosage: 35 DROPS ORAL
     Route: 048
  2. XOPENEX [Concomitant]
  3. ATROVENT [Concomitant]

REACTIONS (7)
  - Abdominal distension [None]
  - Diarrhoea [None]
  - Headache [None]
  - Tremor [None]
  - Wheezing [None]
  - Tachycardia [None]
  - Feeling abnormal [None]
